FAERS Safety Report 10565543 (Version 1)
Quarter: 2014Q4

REPORT INFORMATION
  Report Type: Spontaneous
  Country: US (occurrence: None)
  Receive Date: 20141104
  Receipt Date: 20141104
  Transmission Date: 20150529
  Serious: Yes (Disabling)
  Sender: FDA-Public Use
  Company Number: None

PATIENT
  Age: 62 Year
  Sex: Female
  Weight: 61.24 kg

DRUGS (2)
  1. BACLOFEN. [Suspect]
     Active Substance: BACLOFEN
     Indication: DYSTONIA
     Dosage: 1-1/2 ?THREE TIMES DAILY?TAKEN BY MOUTH?
     Route: 048
     Dates: start: 20140918, end: 20141016
  2. BACLOFEN. [Suspect]
     Active Substance: BACLOFEN
     Indication: MUSCLE SPASTICITY
     Dosage: 1-1/2 ?THREE TIMES DAILY?TAKEN BY MOUTH?
     Route: 048
     Dates: start: 20140918, end: 20141016

REACTIONS (5)
  - Product physical issue [None]
  - Product substitution issue [None]
  - Sleep disorder [None]
  - Wrong technique in drug usage process [None]
  - Motor dysfunction [None]

NARRATIVE: CASE EVENT DATE: 20140918
